FAERS Safety Report 6064180-7 (Version None)
Quarter: 2009Q1

REPORT INFORMATION
  Report Type: 
  Country: None (occurrence: None)
  Receive Date: 20090204
  Receipt Date: 20090123
  Transmission Date: 20090719
  Serious: Yes (Hospitalization)
  Sender: FDA-Public Use
  Company Number: FR-PFIZER INC-2009161727

PATIENT

DRUGS (5)
  1. TRIFLUCAN [Suspect]
     Indication: CANDIDIASIS
     Dosage: 400 MG, 1X/DAY
     Route: 048
     Dates: start: 20081005, end: 20081017
  2. ORBENINE [Suspect]
     Indication: STAPHYLOCOCCAL INFECTION
     Dosage: 2 G, 3X/DAY
     Route: 042
     Dates: start: 20081003, end: 20081014
  3. GENTALLINE [Concomitant]
  4. GLUCOPHAGE [Concomitant]
  5. DAONIL [Concomitant]

REACTIONS (2)
  - ENCEPHALOPATHY [None]
  - HYPERREFLEXIA [None]
